FAERS Safety Report 14174550 (Version 1)
Quarter: 2017Q4

REPORT INFORMATION
  Report Type: Spontaneous
  Country: FR (occurrence: FR)
  Receive Date: 20171109
  Receipt Date: 20171109
  Transmission Date: 20180321
  Serious: Yes (Life-Threatening, Hospitalization)
  Sender: FDA-Public Use
  Company Number: FR-PFIZER INC-2017474614

PATIENT
  Age: 23 Year
  Sex: Female

DRUGS (13)
  1. IDARUBICIN HCL [Suspect]
     Active Substance: IDARUBICIN HYDROCHLORIDE
     Indication: ACUTE LYMPHOCYTIC LEUKAEMIA
     Dosage: UNK
     Route: 051
     Dates: start: 20170727
  2. LUTENYL [Concomitant]
     Active Substance: NOMEGESTROL ACETATE
     Dosage: 5 MG, 1X/DAY
  3. ARACYTINE [Suspect]
     Active Substance: CYTARABINE
     Indication: ACUTE LYMPHOCYTIC LEUKAEMIA
     Dosage: UNK
     Route: 051
     Dates: start: 20170727
  4. LYRICA [Concomitant]
     Active Substance: PREGABALIN
     Dosage: 100 MG, 3X/DAY
  5. PARACETAMOL [Concomitant]
     Active Substance: ACETAMINOPHEN
     Indication: PAIN
     Dosage: 1 G, AS NEEDED (ONE TABLET 4 TIMES DAILY)
  6. PRIMPERAN [Concomitant]
     Active Substance: METOCLOPRAMIDE HYDROCHLORIDE
     Indication: NAUSEA
     Dosage: AS NEEDED (ONE TABLET 3 TIMES DAILY)
  7. BLINCYTO [Suspect]
     Active Substance: BLINATUMOMAB
     Indication: ACUTE LYMPHOCYTIC LEUKAEMIA
     Dosage: UNK
     Route: 051
     Dates: start: 20170902
  8. BACTRIM [Concomitant]
     Active Substance: SULFAMETHOXAZOLE\TRIMETHOPRIM
     Dosage: (1 TABLET 3X WEEKLY)
  9. SPASFON LYOC [Concomitant]
     Active Substance: PHLOROGLUCINOL
     Indication: ABDOMINAL PAIN
     Dosage: 160 MG, AS NEEDED (ONE TABLET 3 TIMES DAILY)
  10. INEXIUM /01479302/ [Concomitant]
     Active Substance: ESOMEPRAZOLE MAGNESIUM
     Dosage: 20 MG, 1X/DAY
  11. ZELITREX [Concomitant]
     Active Substance: VALACYCLOVIR HYDROCHLORIDE
     Dosage: 500 MG, 1X/DAY
  12. GAVISCON /01405501/ [Concomitant]
     Active Substance: SODIUM ALGINATE\SODIUM BICARBONATE
     Indication: DYSPEPSIA
     Dosage: AS NEEDED (ONE SACHET-DOSE 4 TIMES DAILY)
  13. SMECTA [Concomitant]
     Active Substance: MONTMORILLONITE
     Indication: DIARRHOEA
     Dosage: AS NEEDED (ONE SACHET-DOSE 3 TIMES DAILY)

REACTIONS (4)
  - Pericardial effusion [Recovering/Resolving]
  - Tachycardia [Not Recovered/Not Resolved]
  - Thrombocytopenia [Not Recovered/Not Resolved]
  - Pericarditis [Recovered/Resolved]

NARRATIVE: CASE EVENT DATE: 20170913
